FAERS Safety Report 15675635 (Version 1)
Quarter: 2018Q4

REPORT INFORMATION
  Report Type: Spontaneous
  Country: US (occurrence: US)
  Receive Date: 20181130
  Receipt Date: 20181130
  Transmission Date: 20190205
  Serious: Yes (Other)
  Sender: FDA-Public Use
  Company Number: US-SAKK-2018SA308871AA

PATIENT
  Age: 25 Year
  Sex: Male

DRUGS (1)
  1. ENOXAPARIN SODIUM. [Suspect]
     Active Substance: ENOXAPARIN SODIUM
     Indication: OVERDOSE
     Dosage: 31 VIALS OF 80 MG

REACTIONS (7)
  - Wound secretion [Unknown]
  - Intentional overdose [Unknown]
  - Skin laceration [Unknown]
  - Drug abuse [Unknown]
  - Compartment syndrome [Unknown]
  - Tachycardia [Unknown]
  - Injection site haemorrhage [Unknown]
